FAERS Safety Report 4902084-0 (Version None)
Quarter: 2006Q1

REPORT INFORMATION
  Report Type: 
  Country: None (occurrence: None)
  Receive Date: 20060206
  Receipt Date: 20060131
  Transmission Date: 20060701
  Serious: Yes (Life-Threatening)
  Sender: FDA-Public Use
  Company Number: NL-GLAXOSMITHKLINE-B0408755A

PATIENT
  Age: 54 Year
  Sex: Female

DRUGS (3)
  1. PAROXETINE HYDROCHLORIDE [Suspect]
     Indication: ANXIETY DISORDER
     Dosage: 20MG PER DAY
     Dates: start: 20051128
  2. ZOPICLONE [Concomitant]
     Dosage: 7.5MG AS REQUIRED
     Dates: start: 20030116
  3. AERIUS [Concomitant]
     Dates: start: 20021212

REACTIONS (1)
  - SUICIDAL IDEATION [None]
